FAERS Safety Report 9321770 (Version 1)
Quarter: 2013Q2

REPORT INFORMATION
  Report Type: Spontaneous
  Country: NL (occurrence: NL)
  Receive Date: 20130531
  Receipt Date: 20130531
  Transmission Date: 20140414
  Serious: Yes (Other)
  Sender: FDA-Public Use
  Company Number: NL-SANOFI-AVENTIS-2013SA053174

PATIENT
  Age: 60 Year
  Sex: Male
  Weight: 130 kg

DRUGS (2)
  1. FEXOFENADINE HYDROCHLORIDE [Suspect]
     Indication: RHINITIS SEASONAL
     Dosage: DOSE/FREQUENCY: 1 DD 1
     Route: 048
     Dates: start: 20130501
  2. SOTALOL [Concomitant]
     Dosage: STRENGTH:80MG?DOSAGE/UNIT/FREQ/AMOUNT- 2DD1
     Route: 048
     Dates: start: 20120101

REACTIONS (1)
  - Atrial fibrillation [Recovered/Resolved]
